FAERS Safety Report 11356599 (Version 1)
Quarter: 2015Q3

REPORT INFORMATION
  Report Type: Spontaneous
  Country: US (occurrence: US)
  Receive Date: 20150803
  Receipt Date: 20150803
  Transmission Date: 20151125
  Serious: No
  Sender: FDA-Public Use
  Company Number: US-ELI_LILLY_AND_COMPANY-US201206006577

PATIENT
  Sex: Male

DRUGS (2)
  1. ZYPREXA [Suspect]
     Active Substance: OLANZAPINE
     Dosage: 30 MG, QD
  2. ZYPREXA [Suspect]
     Active Substance: OLANZAPINE
     Dosage: 20 MG, EACH EVENING

REACTIONS (6)
  - Anxiety [Unknown]
  - Thinking abnormal [Unknown]
  - Prescribed overdose [Unknown]
  - Abdominal discomfort [Unknown]
  - Agitation [Unknown]
  - Paranoia [Unknown]
